FAERS Safety Report 11245497 (Version 2)
Quarter: 2015Q4

REPORT INFORMATION
  Report Type: Spontaneous
  Country: US (occurrence: US)
  Receive Date: 20150707
  Receipt Date: 20151118
  Transmission Date: 20160304
  Serious: No
  Sender: FDA-Public Use
  Company Number: US-DSJP-DSU-2015-112217

PATIENT
  Sex: Female
  Weight: 76.19 kg

DRUGS (3)
  1. WELCHOL [Suspect]
     Active Substance: COLESEVELAM HYDROCHLORIDE
     Indication: HYPERTHYROIDISM
     Dosage: 3.75 G, QD
     Route: 048
     Dates: start: 20150412, end: 20150412
  2. WELCHOL [Suspect]
     Active Substance: COLESEVELAM HYDROCHLORIDE
     Dosage: 625 MG, TID
     Route: 048
     Dates: start: 20150413
  3. WELCHOL [Suspect]
     Active Substance: COLESEVELAM HYDROCHLORIDE
     Indication: HYPERTHYROIDISM
     Dosage: 1250 MG, TID
     Route: 048
     Dates: start: 20150409, end: 20150411

REACTIONS (4)
  - Off label use [Not Recovered/Not Resolved]
  - Constipation [Recovered/Resolved]
  - Abdominal pain upper [Recovered/Resolved]
  - Urticaria [Recovering/Resolving]

NARRATIVE: CASE EVENT DATE: 20150409
